FAERS Safety Report 24621255 (Version 1)
Quarter: 2024Q4

REPORT INFORMATION
  Report Type: Spontaneous
  Country: US (occurrence: US)
  Receive Date: 20241114
  Receipt Date: 20241114
  Transmission Date: 20250114
  Serious: Yes (Death, Life-Threatening, Hospitalization)
  Sender: AMGEN
  Company Number: US-AMGEN-USASP2024219238

PATIENT
  Sex: Male

DRUGS (4)
  1. PREDNISONE [Suspect]
     Active Substance: PREDNISONE
     Indication: Addison^s disease
     Dosage: 10 MILLIGRAM, QD
     Route: 065
  2. MINOCYCLINE [Concomitant]
     Active Substance: MINOCYCLINE HYDROCHLORIDE
     Indication: Leprosy
     Dosage: 100 MILLIGRAM, QD
     Route: 065
  3. MOXIFLOXACIN [Concomitant]
     Active Substance: MOXIFLOXACIN
     Indication: Leprosy
     Dosage: 400 MILLIGRAM, QD
     Route: 065
  4. CLARITHROMYCIN [Concomitant]
     Active Substance: CLARITHROMYCIN
     Indication: Leprosy
     Dosage: 300 MILLIGRAM, QD
     Route: 065

REACTIONS (4)
  - Cardiac arrest [Fatal]
  - Histoplasmosis disseminated [Unknown]
  - Haemophagocytic lymphohistiocytosis [Unknown]
  - Leprosy [Unknown]
